FAERS Safety Report 8343846-X (Version None)
Quarter: 2012Q2

REPORT INFORMATION
  Report Type: 
  Country: None (occurrence: None)
  Receive Date: 20120508
  Receipt Date: 20100916
  Transmission Date: 20120825
  Serious: Yes (Other)
  Sender: FDA-Public Use
  Company Number: US-TEVA-2010004502

PATIENT
  Sex: Female
  Weight: 66.738 kg

DRUGS (1)
  1. TREANDA [Suspect]
     Indication: MANTLE CELL LYMPHOMA
     Route: 042
     Dates: start: 20100106, end: 20100401

REACTIONS (6)
  - DYSPNOEA [None]
  - WHITE BLOOD CELL COUNT [None]
  - NEUTROPENIA [None]
  - DIZZINESS [None]
  - BONE MARROW FAILURE [None]
  - NERVOUS SYSTEM DISORDER [None]
